FAERS Safety Report 5593665-2 (Version None)
Quarter: 2008Q1

REPORT INFORMATION
  Report Type: 
  Country: None (occurrence: None)
  Receive Date: 20080116
  Receipt Date: 20080109
  Transmission Date: 20080703
  Serious: Yes (Hospitalization)
  Sender: FDA-Public Use
  Company Number: US-BRISTOL-MYERS SQUIBB COMPANY-14035067

PATIENT
  Age: 57 Year
  Sex: Male
  Weight: 117 kg

DRUGS (18)
  1. CETUXIMAB [Suspect]
     Indication: SQUAMOUS CELL CARCINOMA
     Dates: start: 20071227
  2. CISPLATIN [Suspect]
     Indication: SQUAMOUS CELL CARCINOMA
     Dates: start: 20071227
  3. TAXOTERE [Suspect]
     Indication: SQUAMOUS CELL CARCINOMA
     Dates: start: 20071227
  4. FLUOROURACIL [Suspect]
     Indication: SQUAMOUS CELL CARCINOMA
     Dates: start: 20071227
  5. ALKALOL [Concomitant]
     Indication: SALIVA ALTERED
     Dosage: SPECIAL INSTRUCTION: 1 TSPN, MIXED WITH 2 TSPN WATER, SWISH GARGLE AND SPIT
  6. ATENOLOL [Concomitant]
     Route: 048
  7. ATIVAN [Concomitant]
     Indication: NAUSEA
     Route: 048
  8. CIPROFLOXACIN [Concomitant]
     Route: 048
  9. COZAAR [Concomitant]
     Route: 048
  10. DECADRON [Concomitant]
     Route: 048
  11. HYDROCHLOROTHIAZIDE [Concomitant]
     Route: 048
  12. NYSTATIN [Concomitant]
     Dosage: SPECIAL INSTRUCTIONS: SWISH AND SPIT 5 ML, 4 TIMES PER DAY
     Route: 048
  13. REGLAN [Concomitant]
     Indication: NAUSEA
     Route: 048
  14. ROXICET [Concomitant]
     Dosage: DO NOT EXCEED 12 TSPS PER DAY.
     Route: 048
  15. XALATAN [Concomitant]
     Dosage: XALATAN(LATANOPROST) 1 DROP IN THE RIGHT EYE EVERY EVENING
     Route: 047
  16. ZOFRAN [Concomitant]
     Indication: VOMITING
  17. ZOFRAN [Concomitant]
     Indication: NAUSEA
  18. LIPITOR [Concomitant]
     Route: 048
     Dates: start: 20071226, end: 20071226

REACTIONS (2)
  - FEBRILE NEUTROPENIA [None]
  - STOMATITIS [None]
